FAERS Safety Report 18526354 (Version 1)
Quarter: 2020Q4

REPORT INFORMATION
  Report Type: Spontaneous
  Country: US (occurrence: US)
  Receive Date: 20201120
  Receipt Date: 20201120
  Transmission Date: 20210114
  Serious: Yes (Other)
  Sender: FDA-Public Use
  Company Number: US-ACCORD-208393

PATIENT

DRUGS (1)
  1. ESCITALOPRAM ACCORD [Suspect]
     Active Substance: ESCITALOPRAM OXALATE
     Indication: ANXIETY
     Dosage: STRENGTH :10MG 1 TABLET BY MOUTH ONCE A DAILY FOR 90 DAYS
     Route: 048

REACTIONS (6)
  - Drug ineffective [Unknown]
  - Asthenia [Unknown]
  - Feeling abnormal [Unknown]
  - Stupor [Unknown]
  - Pain [Unknown]
  - Altered state of consciousness [Unknown]
